FAERS Safety Report 7130394-8 (Version None)
Quarter: 2010Q4

REPORT INFORMATION
  Report Type: 
  Country: None (occurrence: None)
  Receive Date: 20101201
  Receipt Date: 20101118
  Transmission Date: 20110411
  Serious: Yes (Hospitalization)
  Sender: FDA-Public Use
  Company Number: PHHY2010CA75875

PATIENT
  Sex: Male

DRUGS (1)
  1. SANDOSTATIN LAR [Suspect]
     Indication: SUBILEUS
     Dosage: 30 MG ONCE A MONTH
     Route: 030
     Dates: start: 20100521

REACTIONS (6)
  - ABDOMINAL PAIN [None]
  - EXCORIATION [None]
  - INJECTION SITE ERYTHEMA [None]
  - INJECTION SITE REACTION [None]
  - PALLIATIVE CARE [None]
  - TERMINAL STATE [None]
